FAERS Safety Report 14565421 (Version 2)
Quarter: 2018Q1

REPORT INFORMATION
  Report Type: Spontaneous
  Country: AU (occurrence: AU)
  Receive Date: 20180223
  Receipt Date: 20180313
  Transmission Date: 20180509
  Serious: Yes (Hospitalization, Other)
  Sender: FDA-Public Use
  Company Number: AU-ACCORD-063712

PATIENT
  Age: 67 Year
  Sex: Female

DRUGS (1)
  1. METHOTREXATE. [Suspect]
     Active Substance: METHOTREXATE
     Indication: MENINGITIS
     Dosage: 45 MG MTX TOTAL

REACTIONS (4)
  - Porencephaly [Recovered/Resolved]
  - Encephalitis toxic [Recovered/Resolved]
  - Off label use [Unknown]
  - Device malfunction [Unknown]
